FAERS Safety Report 23064588 (Version 1)
Quarter: 2023Q4

REPORT INFORMATION
  Report Type: Other
  Country: FR (occurrence: None)
  Receive Date: 20231013
  Receipt Date: 20231013
  Transmission Date: 20240110
  Serious: Yes (Death, Other)
  Sender: FDA-Public Use
  Company Number: FR-ROCHE-3435073

PATIENT

DRUGS (5)
  1. ATEZOLIZUMAB [Suspect]
     Active Substance: ATEZOLIZUMAB
     Indication: Small cell lung cancer extensive stage
     Dosage: 1200MG FLAT DOSE
     Route: 042
  2. CARBOPLATIN [Concomitant]
     Active Substance: CARBOPLATIN
  3. ETOPOSIDE [Concomitant]
     Active Substance: ETOPOSIDE
  4. CISPLATIN [Concomitant]
     Active Substance: CISPLATIN
  5. PACLITAXEL [Concomitant]
     Active Substance: PACLITAXEL

REACTIONS (41)
  - Platelet count decreased [Fatal]
  - White blood cell count decreased [Fatal]
  - Immune-mediated encephalitis [Fatal]
  - Septic shock [Fatal]
  - Neutrophil count decreased [Unknown]
  - Aspartate aminotransferase increased [Unknown]
  - Alanine aminotransferase increased [Unknown]
  - Gamma-glutamyltransferase increased [Unknown]
  - Anaemia [Unknown]
  - Febrile neutropenia [Unknown]
  - Diarrhoea [Unknown]
  - Colitis [Unknown]
  - Cheilitis [Unknown]
  - Constipation [Unknown]
  - Nausea [Unknown]
  - Proctitis [Unknown]
  - Stomatitis [Unknown]
  - Alopecia [Unknown]
  - Dermatitis exfoliative generalised [Unknown]
  - Dermatomyositis [Unknown]
  - Pemphigoid [Unknown]
  - Psoriasis [Unknown]
  - Dyspnoea [Unknown]
  - Aspiration [Unknown]
  - Respiratory distress [Unknown]
  - Respiratory failure [Unknown]
  - Encephalitis [Unknown]
  - Hepatic infection [Unknown]
  - Rash pustular [Unknown]
  - Cardiac failure [Unknown]
  - Myocarditis [Unknown]
  - Pericarditis [Unknown]
  - Hyperthyroidism [Unknown]
  - Adrenal insufficiency [Unknown]
  - Fatigue [Unknown]
  - Arthralgia [Unknown]
  - Muscular weakness [Unknown]
  - Myositis [Unknown]
  - Hepatic encephalopathy [Unknown]
  - Peripheral sensory neuropathy [Unknown]
  - Renal failure [Unknown]
